FAERS Safety Report 7943738-1 (Version None)
Quarter: 2011Q4

REPORT INFORMATION
  Report Type: 
  Country: None (occurrence: None)
  Receive Date: 20111128
  Receipt Date: 20111114
  Transmission Date: 20120403
  Serious: Yes (Other)
  Sender: FDA-Public Use
  Company Number: IT-MYLANLABS-2011S1023917

PATIENT
  Age: 29 Year
  Sex: Male

DRUGS (1)
  1. ERYTHROMYCIN [Suspect]
     Dosage: 2000 MG/DAY
     Route: 065

REACTIONS (1)
  - HEPATOTOXICITY [None]
